FAERS Safety Report 6734153-7 (Version None)
Quarter: 2010Q2

REPORT INFORMATION
  Report Type: 
  Country: None (occurrence: None)
  Receive Date: 20100520
  Receipt Date: 20100510
  Transmission Date: 20101027
  Serious: Yes (Other)
  Sender: FDA-Public Use
  Company Number: GXKR2010US05221

PATIENT
  Age: 48 Year
  Sex: Female

DRUGS (5)
  1. ALENDRONIC ACID (NGX) [Suspect]
     Indication: OSTEOPOROSIS
     Dosage: 70 MG, QW
  2. PREDNISONE TAB [Concomitant]
     Indication: RHEUMATOID ARTHRITIS
     Dosage: 4 MG, QD
     Route: 065
  3. PREDNISONE TAB [Concomitant]
     Dosage: 3 MG, QD
     Route: 065
  4. PREDNISONE TAB [Concomitant]
     Dosage: 6 MG, QD
     Route: 065
  5. ESTRADIOL [Concomitant]
     Indication: ATROPHY
     Dosage: LOW-DOSE ESTRADIOL-RELEASING RING (2 YEARS PRIOR TO THE EVENT)

REACTIONS (7)
  - OSTEOPENIA [None]
  - PAIN [None]
  - REHABILITATION THERAPY [None]
  - SPLINT APPLICATION [None]
  - TENDERNESS [None]
  - TIBIA FRACTURE [None]
  - WHEELCHAIR USER [None]
